FAERS Safety Report 9742657 (Version 3)
Quarter: 2015Q3

REPORT INFORMATION
  Report Type: Spontaneous
  Country: US (occurrence: US)
  Receive Date: 20131210
  Receipt Date: 20150804
  Transmission Date: 20151125
  Serious: No
  Sender: FDA-Public Use
  Company Number: US-GILEAD-2009-0025223

PATIENT
  Age: 55 Year
  Sex: Female
  Weight: 118.39 kg

DRUGS (13)
  1. SERTRALINE HCL [Concomitant]
     Active Substance: SERTRALINE HYDROCHLORIDE
  2. ACTOS [Concomitant]
     Active Substance: PIOGLITAZONE HYDROCHLORIDE
  3. LEVOTHYROXINE SODIUM. [Concomitant]
     Active Substance: LEVOTHYROXINE SODIUM
  4. HUMALOG [Concomitant]
     Active Substance: INSULIN LISPRO
  5. METFORMIN HCL [Concomitant]
     Active Substance: METFORMIN HYDROCHLORIDE
  6. INDERAL LA [Concomitant]
     Active Substance: PROPRANOLOL HYDROCHLORIDE
  7. CYMBALTA [Concomitant]
     Active Substance: DULOXETINE HYDROCHLORIDE
  8. LETAIRIS [Suspect]
     Active Substance: AMBRISENTAN
     Indication: PULMONARY ARTERIAL HYPERTENSION
     Route: 048
     Dates: start: 20090924, end: 20091019
  9. FUROSEMIDE. [Concomitant]
     Active Substance: FUROSEMIDE
  10. LANTUS [Concomitant]
     Active Substance: INSULIN GLARGINE
     Dates: start: 20060616
  11. ASPIRIN. [Concomitant]
     Active Substance: ASPIRIN
  12. LAMISIL [Concomitant]
     Active Substance: TERBINAFINE HYDROCHLORIDE
  13. PLAVIX [Concomitant]
     Active Substance: CLOPIDOGREL BISULFATE

REACTIONS (1)
  - Oedema [Recovered/Resolved]

NARRATIVE: CASE EVENT DATE: 20090924
